FAERS Safety Report 9416161 (Version 1)
Quarter: 2013Q3

REPORT INFORMATION
  Report Type: Spontaneous
  Country: TR (occurrence: TR)
  Receive Date: 20130724
  Receipt Date: 20130724
  Transmission Date: 20140515
  Serious: Yes (Death)
  Sender: FDA-Public Use
  Company Number: TR-009507513-1307TUR013268

PATIENT
  Sex: 0

DRUGS (6)
  1. MIANSERIN HYDROCHLORIDE [Suspect]
     Indication: DEPRESSION
     Route: 048
  2. AMITRIPTYLINE HYDROCHLORIDE [Suspect]
     Indication: DEPRESSION
     Route: 048
  3. NORTRIPTYLINE [Suspect]
     Indication: DEPRESSION
  4. SERTRALINE HYDROCHLORIDE [Suspect]
     Indication: DEPRESSION
  5. CITALOPRAM [Suspect]
     Indication: DEPRESSION
  6. METOCLOPRAMIDE [Suspect]
     Indication: DEPRESSION

REACTIONS (1)
  - Completed suicide [Fatal]
